FAERS Safety Report 13612475 (Version 1)
Quarter: 2017Q2

REPORT INFORMATION
  Report Type: Report from Study
  Country: FR (occurrence: FR)
  Receive Date: 20170605
  Receipt Date: 20170605
  Transmission Date: 20170830
  Serious: Yes (Other)
  Sender: FDA-Public Use
  Company Number: PHHO2017FR008595

PATIENT
  Age: 67 Year
  Sex: Male

DRUGS (16)
  1. DABRAFENIB [Suspect]
     Active Substance: DABRAFENIB
     Dosage: 50 MG, BID
     Route: 048
     Dates: start: 20160304, end: 20160323
  2. METOPRIM [Concomitant]
     Indication: ANTICONVULSANT DRUG LEVEL
     Route: 065
  3. PREDNISONE. [Concomitant]
     Active Substance: PREDNISONE
     Indication: STEROID THERAPY
     Dosage: 30 MG, QD
     Route: 065
  4. THIAZIDE DERIVATIVES [Concomitant]
     Active Substance: UNSPECIFIED INGREDIENT
     Indication: HYPERTENSION
  5. CLOBAZAM [Concomitant]
     Active Substance: CLOBAZAM
     Indication: ANTICONVULSANT DRUG LEVEL
     Route: 065
  6. LACOSAMIDE. [Concomitant]
     Active Substance: LACOSAMIDE
     Indication: ANTICONVULSANT DRUG LEVEL
     Dosage: UNK
     Route: 065
  7. VEMURAFENIB [Concomitant]
     Active Substance: VEMURAFENIB
     Indication: PRODUCT USED FOR UNKNOWN INDICATION
     Dosage: 960 MG, BID
     Route: 065
     Dates: start: 20160408
  8. BETA BLOCKING AGENTS [Concomitant]
     Active Substance: UNSPECIFIED INGREDIENT
     Indication: MYOCARDIAL INFARCTION
     Route: 065
  9. BETA BLOCKING AGENTS [Concomitant]
     Active Substance: UNSPECIFIED INGREDIENT
     Indication: HYPERTENSION
  10. BISOPROLOL [Concomitant]
     Active Substance: BISOPROLOL
     Indication: PRODUCT USED FOR UNKNOWN INDICATION
     Route: 065
  11. DABRAFENIB [Suspect]
     Active Substance: DABRAFENIB
     Indication: METASTATIC MALIGNANT MELANOMA
     Dosage: 150 MG, BID
     Route: 048
     Dates: start: 20151031, end: 20160217
  12. TRAMETINIB [Suspect]
     Active Substance: TRAMETINIB
     Indication: METASTATIC MALIGNANT MELANOMA
     Dosage: 2 MG, QD
     Route: 048
     Dates: start: 20151207, end: 20160217
  13. TRAMETINIB [Suspect]
     Active Substance: TRAMETINIB
     Dosage: 1.5 MG, QD
     Route: 048
     Dates: start: 20160304, end: 20160323
  14. THIAZIDE DERIVATIVES [Concomitant]
     Active Substance: UNSPECIFIED INGREDIENT
     Indication: MYOCARDIAL INFARCTION
     Dosage: UNK
     Route: 065
     Dates: end: 20160217
  15. LEVETIRACETAM. [Concomitant]
     Active Substance: LEVETIRACETAM
     Indication: ANTICONVULSANT DRUG LEVEL
     Route: 065
  16. COTELLIC [Concomitant]
     Active Substance: COBIMETINIB
     Indication: PRODUCT USED FOR UNKNOWN INDICATION
     Dosage: UNK
     Route: 065
     Dates: start: 20160408

REACTIONS (5)
  - Hyponatraemia [Unknown]
  - Anaemia [Unknown]
  - Asthenia [Unknown]
  - Thrombocytopenia [Unknown]
  - Hepatocellular injury [Unknown]
